FAERS Safety Report 7386272-2 (Version None)
Quarter: 2011Q1

REPORT INFORMATION
  Report Type: 
  Country: None (occurrence: None)
  Receive Date: 20110323
  Receipt Date: 20110310
  Transmission Date: 20110831
  Serious: Yes (Other)
  Sender: FDA-Public Use
  Company Number: 1000019363

PATIENT
  Age: 27 Year
  Sex: Female

DRUGS (2)
  1. TRAZODONE (TRAZODONE) (TABLETS) (TRAZODONE) [Concomitant]
  2. ESCITALOPRAM OXALATE [Suspect]
     Indication: DEPRESSION
     Dosage: 40 MG (40 MG,1 IN 1 D), ORAL
     Route: 048
     Dates: start: 20090301, end: 20100101

REACTIONS (2)
  - CONVULSION [None]
  - OVERDOSE [None]
